FAERS Safety Report 24367898 (Version 1)
Quarter: 2024Q3

REPORT INFORMATION
  Report Type: Spontaneous
  Country: US (occurrence: US)
  Receive Date: 20240926
  Receipt Date: 20240926
  Transmission Date: 20241016
  Serious: No
  Sender: MYLAN
  Company Number: US-MYLANLABS-2024M1084818

PATIENT
  Sex: Female
  Weight: 65.77 kg

DRUGS (1)
  1. XULANE [Suspect]
     Active Substance: ETHINYL ESTRADIOL\NORELGESTROMIN
     Indication: Dysmenorrhoea
     Dosage: 150/35 MICROGRAM, QD (PATCH APPLIED ONCE A WEEK)
     Route: 062

REACTIONS (3)
  - Off label use [Unknown]
  - Product adhesion issue [Unknown]
  - Wrong technique in product usage process [Unknown]
